FAERS Safety Report 4895515-6 (Version None)
Quarter: 2006Q1

REPORT INFORMATION
  Report Type: 
  Country: None (occurrence: None)
  Receive Date: 20060130
  Receipt Date: 20060118
  Transmission Date: 20060701
  Serious: Yes (Other)
  Sender: FDA-Public Use
  Company Number: US-SANOFI-SYNTHELABO-A03200600396

PATIENT
  Sex: Female

DRUGS (2)
  1. PLAVIX [Suspect]
     Indication: CEREBROVASCULAR ACCIDENT
     Route: 048
     Dates: start: 20051001, end: 20050101
  2. PLAVIX [Suspect]
     Route: 048
     Dates: start: 20060101

REACTIONS (6)
  - ABDOMINAL PAIN [None]
  - ASTHENIA [None]
  - ATRIAL FIBRILLATION [None]
  - SLEEP APNOEA SYNDROME [None]
  - UPPER RESPIRATORY TRACT INFECTION [None]
  - URINARY TRACT INFECTION [None]
